FAERS Safety Report 21879857 (Version 1)
Quarter: 2023Q1

REPORT INFORMATION
  Report Type: Spontaneous
  Country: US (occurrence: None)
  Receive Date: 20230117
  Receipt Date: 20230117
  Transmission Date: 20230418
  Serious: Yes (Other)
  Sender: FDA-Public Use
  Company Number: None

PATIENT
  Age: 68 Year
  Sex: Female
  Weight: 90 kg

DRUGS (9)
  1. RECLAST [Suspect]
     Active Substance: ZOLEDRONIC ACID
     Indication: Bone disorder
     Dates: start: 20221111, end: 20221111
  2. PROZAC [Concomitant]
     Active Substance: FLUOXETINE HYDROCHLORIDE
  3. PREVACID [Concomitant]
     Active Substance: LANSOPRAZOLE
  4. LEVOTHYROXINE [Concomitant]
     Active Substance: LEVOTHYROXINE
  5. Arorvastatin [Concomitant]
  6. LITHIUM [Concomitant]
     Active Substance: LITHIUM
  7. VITAMINS [Concomitant]
     Active Substance: VITAMINS
  8. VITAMIN D [Concomitant]
     Active Substance: VITAMIN D NOS
  9. VITAMIN B [Concomitant]
     Active Substance: VITAMIN B

REACTIONS (7)
  - Infusion related reaction [None]
  - Illness [None]
  - Influenza like illness [None]
  - Bone pain [None]
  - Iritis [None]
  - Deafness unilateral [None]
  - COVID-19 [None]

NARRATIVE: CASE EVENT DATE: 20221111
